FAERS Safety Report 15462532 (Version 1)
Quarter: 2018Q4

REPORT INFORMATION
  Report Type: Report from Study
  Country: None (occurrence: AR)
  Receive Date: 20181004
  Receipt Date: 20181004
  Transmission Date: 20190204
  Serious: Yes (Other)
  Sender: FDA-Public Use
  Company Number: AR-ABBVIE-18K-007-2506444-00

PATIENT
  Sex: Female

DRUGS (1)
  1. HUMIRA [Suspect]
     Active Substance: ADALIMUMAB
     Indication: PSORIATIC ARTHROPATHY
     Route: 058
     Dates: start: 20180503, end: 201809

REACTIONS (8)
  - Procedural pain [Unknown]
  - Infection [Unknown]
  - Tooth extraction [Unknown]
  - Alveolar osteitis [Unknown]
  - Post procedural infection [Unknown]
  - Dental cyst [Unknown]
  - Periostitis [Unknown]
  - Impaired healing [Unknown]

NARRATIVE: CASE EVENT DATE: 2018
